FAERS Safety Report 9393192 (Version 5)
Quarter: 2013Q4

REPORT INFORMATION
  Report Type: Report from Study
  Country: US (occurrence: US)
  Receive Date: 20130710
  Receipt Date: 20131125
  Transmission Date: 20140711
  Serious: Yes (Hospitalization)
  Sender: FDA-Public Use
  Company Number: US-ACTELION-A-NJ2013-85496

PATIENT
  Age: 77 Year
  Sex: Female

DRUGS (2)
  1. VELETRI [Suspect]
     Indication: PULMONARY ARTERIAL HYPERTENSION
     Dosage: 23 NG/KG, PER MIN
     Route: 042
     Dates: start: 20130627
  2. COUMADIN [Concomitant]

REACTIONS (12)
  - Faeces discoloured [Recovered/Resolved]
  - Pain in extremity [Not Recovered/Not Resolved]
  - Back pain [Unknown]
  - Fatigue [Recovering/Resolving]
  - Dyspnoea [Recovering/Resolving]
  - Pain in jaw [Not Recovered/Not Resolved]
  - Diarrhoea [Not Recovered/Not Resolved]
  - Hypoaesthesia [Unknown]
  - Oedema peripheral [Not Recovered/Not Resolved]
  - Asthenia [Unknown]
  - Burning sensation [Unknown]
  - Dyspnoea exertional [Recovering/Resolving]
